FAERS Safety Report 9921398 (Version 1)
Quarter: 2014Q1

REPORT INFORMATION
  Report Type: Spontaneous
  Country: US (occurrence: None)
  Receive Date: 20140221
  Receipt Date: 20140221
  Transmission Date: 20141002
  Serious: Yes (Other)
  Sender: FDA-Public Use
  Company Number: None

PATIENT
  Age: 56 Year
  Sex: Female

DRUGS (1)
  1. ORENCIA [Suspect]
     Indication: RHEUMATOID ARTHRITIS
     Dates: start: 20130409

REACTIONS (6)
  - Weight increased [None]
  - Abdominal distension [None]
  - Tooth disorder [None]
  - Tooth discolouration [None]
  - Tooth fracture [None]
  - Blood pressure abnormal [None]
